FAERS Safety Report 5290836-X (Version None)
Quarter: 2007Q2

REPORT INFORMATION
  Report Type: 
  Country: None (occurrence: None)
  Receive Date: 20070409
  Receipt Date: 20070326
  Transmission Date: 20071010
  Serious: Yes (Hospitalization)
  Sender: FDA-Public Use
  Company Number: JP-PFIZER INC-2007020843

PATIENT
  Age: 86 Year
  Sex: Female

DRUGS (1)
  1. DIFLUCAN [Suspect]
     Indication: CANDIDIASIS
     Dosage: DAILY DOSE:50MG
     Route: 042
     Dates: start: 20070309, end: 20070311

REACTIONS (1)
  - TACHYCARDIA [None]
